FAERS Safety Report 24712454 (Version 1)
Quarter: 2024Q4

REPORT INFORMATION
  Report Type: Spontaneous
  Country: CN (occurrence: CN)
  Receive Date: 20241209
  Receipt Date: 20241209
  Transmission Date: 20250114
  Serious: Yes (Life-Threatening, Other)
  Sender: BAYER HEALTHCARE PHARMACEUTICALS INC.
  Company Number: CN-BAYER-2024A173243

PATIENT
  Age: 71 Year
  Sex: Female
  Weight: 69 kg

DRUGS (2)
  1. ULTRAVIST [Suspect]
     Active Substance: IOPROMIDE
     Indication: Angiocardiogram
     Dosage: 50 ML, ONCE
     Route: 042
     Dates: start: 20241128, end: 20241128
  2. LIDOCAINE HYDROCHLORIDE [Concomitant]
     Active Substance: LIDOCAINE HYDROCHLORIDE
     Indication: Local anaesthesia
     Dosage: UNK UNK, ONCE
     Dates: start: 20241128, end: 20241128

REACTIONS (7)
  - Loss of consciousness [Recovered/Resolved]
  - Tracheal obstruction [Recovering/Resolving]
  - Blood pressure fluctuation [Recovered/Resolved]
  - Heart rate increased [None]
  - Rales [Recovered/Resolved]
  - Blood glucose increased [None]
  - Wheezing [None]

NARRATIVE: CASE EVENT DATE: 20241128
